FAERS Safety Report 8484909-8 (Version None)
Quarter: 2012Q2

REPORT INFORMATION
  Report Type: 
  Country: None (occurrence: None)
  Receive Date: 20120625
  Receipt Date: 20120607
  Transmission Date: 20120825
  Serious: Yes (Other)
  Sender: FDA-Public Use
  Company Number: CRC-12-246

PATIENT
  Age: 34 Year
  Sex: Female

DRUGS (1)
  1. MODAFINIL [Suspect]
     Indication: SOMNOLENCE
     Dosage: 100 MG 3XDAY, ORALLY
     Route: 048

REACTIONS (4)
  - DEPRESSED LEVEL OF CONSCIOUSNESS [None]
  - PRODUCT QUALITY ISSUE [None]
  - PRODUCT COUNTERFEIT [None]
  - HEADACHE [None]
